FAERS Safety Report 9830490 (Version 1)
Quarter: 2014Q1

REPORT INFORMATION
  Report Type: Report from Study
  Country: NL (occurrence: NL)
  Receive Date: 20140120
  Receipt Date: 20140120
  Transmission Date: 20141002
  Serious: Yes (Other)
  Sender: FDA-Public Use
  Company Number: NL-VIIV HEALTHCARE LIMITED-B0961381A

PATIENT
  Age: 67 Year
  Sex: Male

DRUGS (3)
  1. COMBIVIR [Suspect]
     Indication: HIV INFECTION
     Route: 065
  2. VIREAD [Suspect]
     Indication: HIV INFECTION
     Route: 065
  3. REYATAZ [Suspect]
     Indication: HIV INFECTION
     Route: 065

REACTIONS (3)
  - Adverse drug reaction [Unknown]
  - Renal impairment [Unknown]
  - Cholelithiasis [Unknown]
